FAERS Safety Report 7969516-5 (Version None)
Quarter: 2011Q4

REPORT INFORMATION
  Report Type: 
  Country: None (occurrence: None)
  Receive Date: 20111212
  Receipt Date: 20111202
  Transmission Date: 20120403
  Serious: Yes (Hospitalization)
  Sender: FDA-Public Use
  Company Number: FR-SP-2011-11796

PATIENT
  Sex: Male

DRUGS (7)
  1. TRAMADOL HCL [Concomitant]
     Route: 048
  2. IMMUCYST [Suspect]
     Indication: BLADDER CANCER STAGE 0, WITH CANCER IN SITU
     Route: 043
     Dates: start: 20111014, end: 20111014
  3. LEXOMIL [Concomitant]
     Route: 048
  4. AVODART [Concomitant]
     Route: 048
  5. ALFUZOSIN HCL [Concomitant]
     Route: 048
  6. VENTOLIN [Concomitant]
     Dosage: ON REQUEST
     Route: 045
  7. PULMICORT [Concomitant]
     Route: 045

REACTIONS (15)
  - WEIGHT DECREASED [None]
  - INCONTINENCE [None]
  - ASTHENIA [None]
  - INCORRECT DOSE ADMINISTERED [None]
  - PELVIC PAIN [None]
  - HYPERHIDROSIS [None]
  - DECREASED APPETITE [None]
  - DYSURIA [None]
  - PULMONARY TUBERCULOSIS [None]
  - GENERAL PHYSICAL HEALTH DETERIORATION [None]
  - PYREXIA [None]
  - CHROMATURIA [None]
  - OFF LABEL USE [None]
  - BOVINE TUBERCULOSIS [None]
  - DYSPNOEA [None]
